FAERS Safety Report 5339939-1 (Version None)
Quarter: 2007Q2

REPORT INFORMATION
  Report Type: 
  Country: None (occurrence: None)
  Receive Date: 20070529
  Receipt Date: 20070515
  Transmission Date: 20071010
  Serious: Yes (Other)
  Sender: FDA-Public Use
  Company Number: B0471920A

PATIENT
  Age: 60 Year
  Sex: Female

DRUGS (6)
  1. LITHIUM SALT (FORMULATION UNKNOWN) (GENERIC) (LITHIUM SALT) [Suspect]
     Dosage: SEE DOSAGE TEXT,
  2. VALSARTAN [Suspect]
     Dosage: 80 MG, PER DAY;
  3. AMLODIPINE BESYLATE [Concomitant]
  4. VALPROATE SODIUM [Concomitant]
  5. CLONAZEPAM [Concomitant]
  6. RISPERIDONE [Concomitant]

REACTIONS (14)
  - AZOTAEMIA [None]
  - BLOOD POTASSIUM INCREASED [None]
  - BLOOD SODIUM DECREASED [None]
  - COORDINATION ABNORMAL [None]
  - DISEASE RECURRENCE [None]
  - DRUG INTERACTION [None]
  - FALL [None]
  - GAIT DISTURBANCE [None]
  - HYPOKINESIA [None]
  - MANIA [None]
  - MUSCLE RIGIDITY [None]
  - RENAL IMPAIRMENT [None]
  - THERAPEUTIC AGENT TOXICITY [None]
  - TREMOR [None]
